FAERS Safety Report 10301716 (Version 2)
Quarter: 2018Q1

REPORT INFORMATION
  Report Type: Spontaneous
  Country: US (occurrence: US)
  Receive Date: 20140714
  Receipt Date: 20180131
  Transmission Date: 20180508
  Serious: Yes (Hospitalization, Other)
  Sender: FDA-Public Use
  Company Number: US-ABBVIE-14P-163-1257364-00

PATIENT

DRUGS (1)
  1. CREON [Suspect]
     Active Substance: PANCRELIPASE AMYLASE\PANCRELIPASE LIPASE\PANCRELIPASE PROTEASE
     Indication: PRODUCT USED FOR UNKNOWN INDICATION
     Dosage: TAKE THREE PILLS WITH FULL MEALS AND TWO PILLS WITH SNACKS
     Route: 065

REACTIONS (8)
  - Asthenia [Unknown]
  - Hospitalisation [Unknown]
  - Malaise [Unknown]
  - Infected cyst [Unknown]
  - Hip arthroplasty [Recovered/Resolved]
  - Post procedural infection [Unknown]
  - Post procedural inflammation [Unknown]
  - Hypophagia [Unknown]
